FAERS Safety Report 14200342 (Version 1)
Quarter: 2017Q4

REPORT INFORMATION
  Report Type: Spontaneous
  Country: FR (occurrence: FR)
  Receive Date: 20171117
  Receipt Date: 20171117
  Transmission Date: 20180321
  Serious: Yes (Other)
  Sender: FDA-Public Use
  Company Number: FR-GUERBET-FR-20170589

PATIENT
  Age: 74 Year
  Sex: Male

DRUGS (1)
  1. OPTIJECT 350 [Suspect]
     Active Substance: IOVERSOL
     Indication: COMPUTERISED TOMOGRAM
     Route: 042
     Dates: start: 20170912, end: 20170912

REACTIONS (5)
  - Decreased appetite [Recovering/Resolving]
  - Infusion site extravasation [Recovering/Resolving]
  - Pain in extremity [Recovering/Resolving]
  - Weight decreased [Recovering/Resolving]
  - Feeling abnormal [Recovering/Resolving]

NARRATIVE: CASE EVENT DATE: 20170912
